FAERS Safety Report 4658663-1 (Version None)
Quarter: 2005Q2

REPORT INFORMATION
  Report Type: 
  Country: None (occurrence: None)
  Receive Date: 20050509
  Receipt Date: 20050425
  Transmission Date: 20051028
  Serious: Yes (Life-Threatening, Hospitalization)
  Sender: FDA-Public Use
  Company Number: S05-USA-02250-01

PATIENT
  Age: 30 Year
  Sex: Female

DRUGS (6)
  1. LEXAPRO [Suspect]
     Indication: DEPRESSION
     Dosage: 20 MG QD PO
     Route: 048
     Dates: start: 20040101
  2. LITHIUM [Suspect]
     Indication: BIPOLAR DISORDER
     Dosage: 600 MG QD
     Dates: start: 20041001
  3. LAMICTAL [Suspect]
     Indication: BIPOLAR DISORDER
     Dosage: 50 MG BID
  4. ABILIFY [Suspect]
     Indication: BIPOLAR DISORDER
     Dosage: 15 MG QD
     Dates: start: 20041001
  5. SEROQUEL [Suspect]
     Indication: BIPOLAR DISORDER
     Dates: start: 20010101, end: 20041001
  6. TRAZODONE [Suspect]
     Indication: BIPOLAR DISORDER
     Dates: start: 20010101, end: 20041001

REACTIONS (8)
  - CONDITION AGGRAVATED [None]
  - DEPRESSION [None]
  - DRUG INEFFECTIVE [None]
  - MANIA [None]
  - MULTIPLE DRUG OVERDOSE [None]
  - PERSONALITY CHANGE [None]
  - SUICIDE ATTEMPT [None]
  - WEIGHT INCREASED [None]
